FAERS Safety Report 7513943-7 (Version None)
Quarter: 2011Q2

REPORT INFORMATION
  Report Type: 
  Country: None (occurrence: None)
  Receive Date: 20110531
  Receipt Date: 20110523
  Transmission Date: 20111010
  Serious: Yes (Hospitalization)
  Sender: FDA-Public Use
  Company Number: US-B.I. PHARMACEUTICALS,INC./RIDGEFIELD-2011-BP-11787BP

PATIENT
  Age: 92 Year
  Sex: Female
  Weight: 67.13 kg

DRUGS (19)
  1. LOTREL [Concomitant]
  2. COLACE [Concomitant]
     Dosage: 200 MG
  3. ZANTAC [Concomitant]
     Dosage: 150 MG
  4. SELENIUM [Concomitant]
  5. FOSAMAX [Concomitant]
  6. SPECTAZOLE [Concomitant]
  7. PRADAXA [Suspect]
     Indication: ATRIAL FIBRILLATION
     Dosage: 300 MG
     Dates: start: 20110402
  8. OXYBUTYNIN [Concomitant]
     Dosage: 5 MG
  9. RESTORIL [Concomitant]
     Dosage: 30 MG
  10. TYLENOL W/ CODEINE NO. 3 [Concomitant]
  11. METROCREAM [Concomitant]
  12. MIRALAX [Concomitant]
  13. VICODIN [Concomitant]
  14. PROSIGHT [Concomitant]
  15. NEOSPORIN [Concomitant]
  16. CLOBETASOL PROPIONATE [Concomitant]
  17. LUBRIDERM LOTION [Concomitant]
  18. VITAMIN D [Concomitant]
     Dosage: 1000 U
  19. TRIAMCINOLONE [Concomitant]

REACTIONS (3)
  - DYSGEUSIA [None]
  - DRY MOUTH [None]
  - TONGUE DISCOLOURATION [None]
